FAERS Safety Report 5225390-1 (Version None)
Quarter: 2007Q1

REPORT INFORMATION
  Report Type: 
  Country: None (occurrence: None)
  Receive Date: 20070131
  Receipt Date: 20070122
  Transmission Date: 20070707
  Serious: Yes (Other)
  Sender: FDA-Public Use
  Company Number: DE-SHR-DE-2006-022285

PATIENT

DRUGS (1)
  1. ULTRAVIST 300 [Suspect]
     Dosage: UNK, 1 DOSE
     Dates: start: 20060101, end: 20060101

REACTIONS (3)
  - CIRCULATORY COLLAPSE [None]
  - HYPERSENSITIVITY [None]
  - URTICARIA [None]
